FAERS Safety Report 5809911-3 (Version None)
Quarter: 2008Q3

REPORT INFORMATION
  Report Type: 
  Country: None (occurrence: None)
  Receive Date: 20080715
  Receipt Date: 20080711
  Transmission Date: 20090109
  Serious: Yes (Death)
  Sender: FDA-Public Use
  Company Number: NL-TEVA-174261ISR

PATIENT
  Sex: Male

DRUGS (3)
  1. COPAXONE [Suspect]
     Dates: start: 20070604
  2. AMANTADINE HCL [Concomitant]
  3. OXYBUTYNIN CHLORIDE [Concomitant]

REACTIONS (1)
  - CARDIAC ARREST [None]
